FAERS Safety Report 8105834-8 (Version None)
Quarter: 2012Q1

REPORT INFORMATION
  Report Type: 
  Country: None (occurrence: None)
  Receive Date: 20120201
  Receipt Date: 20120120
  Transmission Date: 20120608
  Serious: Yes (Other)
  Sender: FDA-Public Use
  Company Number: BR-AMGEN-BRASP2010012143

PATIENT
  Age: 57 Year
  Sex: Female
  Weight: 69.977 kg

DRUGS (4)
  1. ALGINAC [Concomitant]
  2. ENBREL [Suspect]
     Indication: PSORIATIC ARTHROPATHY
     Dosage: 50 MG, WEEKLY (1X/WEEK)
     Route: 058
     Dates: start: 20100720
  3. CEPHALEXIN [Concomitant]
  4. OMEPRAZOLE [Concomitant]

REACTIONS (3)
  - KNEE ARTHROPLASTY [None]
  - APPLICATION SITE ERYTHEMA [None]
  - APPLICATION SITE PRURITUS [None]
